FAERS Safety Report 11785678 (Version 1)
Quarter: 2015Q4

REPORT INFORMATION
  Report Type: Spontaneous
  Country: US (occurrence: None)
  Receive Date: 20151125
  Receipt Date: 20151125
  Transmission Date: 20160305
  Serious: No
  Sender: FDA-Public Use
  Company Number: None

PATIENT
  Age: 84 Year
  Sex: Male

DRUGS (9)
  1. REMERON [Suspect]
     Active Substance: MIRTAZAPINE
     Indication: DEPRESSION
     Dosage: 7.5 MG 1 A-DAY BEDTIME ORALLY
     Route: 048
     Dates: start: 20140215
  2. 1 A DAY VITAMINS [Concomitant]
  3. FENESTERIDE [Concomitant]
  4. OMEPRAZOLE. [Concomitant]
     Active Substance: OMEPRAZOLE
  5. FIBER [Concomitant]
     Active Substance: PSYLLIUM HUSK
  6. FISH OIL [Concomitant]
     Active Substance: FISH OIL
  7. REMERON [Suspect]
     Active Substance: MIRTAZAPINE
     Indication: SLEEP DISORDER
     Dosage: 7.5 MG 1 A-DAY BEDTIME ORALLY
     Route: 048
     Dates: start: 20140215
  8. ASPIRIN. [Concomitant]
     Active Substance: ASPIRIN
  9. CETIRIZINE [Concomitant]
     Active Substance: CETIRIZINE HYDROCHLORIDE

REACTIONS (2)
  - Nightmare [None]
  - Sleep disorder [None]

NARRATIVE: CASE EVENT DATE: 20140215
